FAERS Safety Report 16606464 (Version 2)
Quarter: 2019Q3

REPORT INFORMATION
  Report Type: Spontaneous
  Country: US (occurrence: US)
  Receive Date: 20190722
  Receipt Date: 20190723
  Transmission Date: 20191004
  Serious: Yes (Other)
  Sender: FDA-Public Use
  Company Number: US-JNJFOC-20190713574

PATIENT
  Sex: Male
  Weight: 78.75 kg

DRUGS (4)
  1. CLOBETASOL [Concomitant]
     Active Substance: CLOBETASOL
     Indication: PRODUCT USED FOR UNKNOWN INDICATION
     Route: 065
  2. BENADRYL [Suspect]
     Active Substance: DIPHENHYDRAMINE HYDROCHLORIDE
     Indication: PRODUCT USED FOR UNKNOWN INDICATION
     Dosage: 2 PILLS DAILY
     Route: 065
  3. GLECAPREVIR [Suspect]
     Active Substance: GLECAPREVIR
     Indication: HEPATITIS C
     Dosage: 100 MG- 40 TAB MG (3 TABLET)
     Route: 048
     Dates: start: 20180313, end: 20180604
  4. PIBRENTASVIR [Suspect]
     Active Substance: PIBRENTASVIR
     Indication: HEPATITIS C
     Dosage: 100 MG- 40 TAB MG (3 TABLET)
     Route: 048
     Dates: start: 20180313, end: 20180604

REACTIONS (5)
  - Gallbladder operation [Unknown]
  - Postoperative wound complication [Unknown]
  - Eczema [Unknown]
  - Injury [Unknown]
  - Headache [Recovered/Resolved]

NARRATIVE: CASE EVENT DATE: 20180320
